FAERS Safety Report 16444168 (Version 1)
Quarter: 2019Q2

REPORT INFORMATION
  Report Type: Spontaneous
  Country: US (occurrence: US)
  Receive Date: 20190618
  Receipt Date: 20190618
  Transmission Date: 20190711
  Serious: No
  Sender: FDA-Public Use
  Company Number: US-ELI_LILLY_AND_COMPANY-US201906003333

PATIENT
  Sex: Female

DRUGS (3)
  1. TOUJEO [Concomitant]
     Active Substance: INSULIN GLARGINE
     Indication: DIABETES MELLITUS
     Dosage: 66 U, EACH EVENING
  2. HUMALOG [Suspect]
     Active Substance: INSULIN LISPRO
     Indication: LATENT AUTOIMMUNE DIABETES IN ADULTS
     Dosage: 50-75 U, QID
  3. HUMALOG [Suspect]
     Active Substance: INSULIN LISPRO
     Dosage: 300 U, DAILY, SLIDING SCALE
     Route: 058

REACTIONS (3)
  - Blood glucose increased [Recovering/Resolving]
  - Insulin resistance [Recovering/Resolving]
  - Product storage error [Unknown]
